FAERS Safety Report 21923354 (Version 2)
Quarter: 2023Q1

REPORT INFORMATION
  Report Type: Report from Study
  Country: US (occurrence: US)
  Receive Date: 20230129
  Receipt Date: 20230310
  Transmission Date: 20230418
  Serious: Yes (Hospitalization, Other)
  Sender: FDA-Public Use
  Company Number: US-ABBVIE-4284741

PATIENT
  Age: 77 Year
  Sex: Male

DRUGS (3)
  1. HUMIRA [Suspect]
     Active Substance: ADALIMUMAB
     Indication: Psoriasis
     Route: 058
     Dates: start: 20210223, end: 20221225
  2. HUMIRA [Suspect]
     Active Substance: ADALIMUMAB
     Route: 058
     Dates: start: 20210303
  3. HUMIRA [Suspect]
     Active Substance: ADALIMUMAB
     Indication: Psoriasis
     Route: 058
     Dates: start: 20210303

REACTIONS (8)
  - COVID-19 [Recovering/Resolving]
  - Blood disorder [Recovering/Resolving]
  - Traumatic intracranial haemorrhage [Unknown]
  - Illness [Unknown]
  - Fall [Unknown]
  - Sepsis [Unknown]
  - Confusional state [Unknown]
  - Head injury [Unknown]

NARRATIVE: CASE EVENT DATE: 20221225
